FAERS Safety Report 6465861-3 (Version None)
Quarter: 2009Q4

REPORT INFORMATION
  Report Type: 
  Country: None (occurrence: None)
  Receive Date: 20091127
  Receipt Date: 20091112
  Transmission Date: 20100525
  Serious: No
  Sender: FDA-Public Use
  Company Number: 8054465

PATIENT
  Age: 45 Year
  Sex: Male
  Weight: 90.9 kg

DRUGS (4)
  1. KEPPRA [Suspect]
     Indication: CONVULSION
     Dosage: 1500 MG 1/D PO
     Route: 048
     Dates: start: 20080101
  2. KEPPRA [Suspect]
     Indication: CONVULSION
     Dosage: 1500 MG 1/D PO
     Route: 048
     Dates: start: 20080101
  3. KLONOPIN [Concomitant]
  4. PHENOBARBITAL TAB [Concomitant]

REACTIONS (2)
  - DECREASED APPETITE [None]
  - WEIGHT DECREASED [None]
